FAERS Safety Report 10089979 (Version 1)
Quarter: 2014Q2

REPORT INFORMATION
  Report Type: Spontaneous
  Country: US (occurrence: US)
  Receive Date: 20140421
  Receipt Date: 20140421
  Transmission Date: 20141212
  Serious: No
  Sender: FDA-Public Use
  Company Number: US-ABBVIE-14P-163-1199170-00

PATIENT
  Age: 8 Year
  Sex: Female
  Weight: 35.5 kg

DRUGS (1)
  1. LUPRON DEPOT-PED (3 MONTH) [Suspect]
     Indication: PRECOCIOUS PUBERTY
     Route: 030
     Dates: start: 20131028, end: 20140130

REACTIONS (6)
  - Swelling [Recovered/Resolved]
  - Rash [Recovered/Resolved]
  - Swelling [Recovered/Resolved]
  - Pyrexia [Recovered/Resolved]
  - Rash [Recovering/Resolving]
  - Pyrexia [Recovered/Resolved]
